FAERS Safety Report 18467848 (Version 1)
Quarter: 2020Q4

REPORT INFORMATION
  Report Type: Spontaneous
  Country: US (occurrence: US)
  Receive Date: 20201104
  Receipt Date: 20201104
  Transmission Date: 20210114
  Serious: No
  Sender: FDA-Public Use
  Company Number: None

PATIENT
  Age: 61 Year
  Sex: Female
  Weight: 59.4 kg

DRUGS (13)
  1. AROMASIN [Concomitant]
     Active Substance: EXEMESTANE
  2. CALCIUM + D3 [Concomitant]
     Active Substance: CALCIUM\CHOLECALCIFEROL
  3. BENADRYL ALLERGY [Concomitant]
     Active Substance: DIPHENHYDRAMINE HYDROCHLORIDE
  4. PEPCID AC [Concomitant]
     Active Substance: FAMOTIDINE
  5. CAPECITABINE. [Suspect]
     Active Substance: CAPECITABINE
     Indication: BREAST CANCER FEMALE
     Route: 048
  6. COLACE [Concomitant]
     Active Substance: DOCUSATE SODIUM
  7. ONDANSETRON HCL [Concomitant]
     Active Substance: ONDANSETRON HYDROCHLORIDE
  8. FOLIC ACID. [Concomitant]
     Active Substance: FOLIC ACID
  9. ELIQUIS [Concomitant]
     Active Substance: APIXABAN
  10. MORPHINE SULFATE ER [Concomitant]
     Active Substance: MORPHINE SULFATE
  11. NARCAN [Concomitant]
     Active Substance: NALOXONE HYDROCHLORIDE
  12. MS CONTIN [Concomitant]
     Active Substance: MORPHINE SULFATE
  13. ACETAMINOPHEN EXTRA STRENGTH [Concomitant]
     Active Substance: ACETAMINOPHEN

REACTIONS (2)
  - Abdominal pain upper [None]
  - Decreased appetite [None]

NARRATIVE: CASE EVENT DATE: 20201104
